FAERS Safety Report 9335667 (Version 1)
Quarter: 2013Q2

REPORT INFORMATION
  Report Type: Spontaneous
  Country: IL (occurrence: IL)
  Receive Date: 20130605
  Receipt Date: 20130605
  Transmission Date: 20140414
  Serious: Yes (Hospitalization)
  Sender: FDA-Public Use
  Company Number: IL-009507513-1305ISR015003

PATIENT
  Age: 22 Year
  Sex: Female
  Weight: 57 kg

DRUGS (5)
  1. VICTRELIS [Suspect]
     Indication: HEPATITIS C
     Dosage: 800, TID
     Route: 048
     Dates: start: 20130127
  2. PEGASYS [Suspect]
     Indication: HEPATITIS C
     Dosage: 90, QW
     Route: 058
     Dates: start: 20130103
  3. COPEGUS [Suspect]
     Indication: HEPATITIS C
     Dosage: 600, QD
     Route: 048
     Dates: start: 20130103
  4. EPOETIN [Concomitant]
     Indication: ANAEMIA
     Dosage: 3000 IU, QW
     Route: 030
     Dates: start: 20130317
  5. NEUPOGEN [Concomitant]
     Indication: NEUTROPENIA
     Dosage: 300 MICROGRAM, QW
     Route: 030
     Dates: start: 20130414

REACTIONS (3)
  - Pancytopenia [Not Recovered/Not Resolved]
  - Anaemia [Recovered/Resolved]
  - Neutropenia [Recovered/Resolved]
